FAERS Safety Report 14837542 (Version 1)
Quarter: 2018Q2

REPORT INFORMATION
  Report Type: Spontaneous
  Country: SE (occurrence: SE)
  Receive Date: 20180502
  Receipt Date: 20180502
  Transmission Date: 20180711
  Serious: Yes (Other)
  Sender: FDA-Public Use
  Company Number: PHHY2018SE076905

PATIENT
  Age: 57 Year
  Sex: Female

DRUGS (2)
  1. ESCITALOPRAM [Concomitant]
     Active Substance: ESCITALOPRAM OXALATE
     Indication: PRODUCT USED FOR UNKNOWN INDICATION
     Dosage: UNK
     Route: 065
  2. QUETIAPINE. [Suspect]
     Active Substance: QUETIAPINE
     Indication: INSOMNIA
     Dosage: 25 MG, UNK (1-2 TO THE NIGHT IF NECESSARY)
     Route: 048
     Dates: start: 201710, end: 201710

REACTIONS (3)
  - Indifference [Recovered/Resolved]
  - Suicidal ideation [Recovered/Resolved]
  - Emotional poverty [Recovered/Resolved]

NARRATIVE: CASE EVENT DATE: 201710
